FAERS Safety Report 23722992 (Version 2)
Quarter: 2024Q2

REPORT INFORMATION
  Report Type: Spontaneous
  Country: US (occurrence: US)
  Receive Date: 20240409
  Receipt Date: 20240430
  Transmission Date: 20240715
  Serious: Yes (Other)
  Sender: FDA-Public Use
  Company Number: US-Calliditas-2024CAL00540

PATIENT
  Age: 46 Year
  Sex: Male

DRUGS (6)
  1. TARPEYO [Suspect]
     Active Substance: BUDESONIDE
     Indication: IgA nephropathy
     Route: 048
     Dates: start: 20231026
  2. ROSUVASTATIN [Concomitant]
     Active Substance: ROSUVASTATIN
  3. VALSARTAN [Concomitant]
     Active Substance: VALSARTAN
  4. EPLERENONE [Concomitant]
     Active Substance: EPLERENONE
  5. ICOSAPENT ETHYL [Concomitant]
     Active Substance: ICOSAPENT ETHYL
  6. ALLOPURINOL [Concomitant]
     Active Substance: ALLOPURINOL

REACTIONS (1)
  - Diabetes mellitus [Not Recovered/Not Resolved]

NARRATIVE: CASE EVENT DATE: 20240208
